FAERS Safety Report 5771404-X (Version None)
Quarter: 2008Q2

REPORT INFORMATION
  Report Type: 
  Country: None (occurrence: None)
  Receive Date: 20080613
  Receipt Date: 20080606
  Transmission Date: 20081010
  Serious: Yes (Disabling, Other)
  Sender: FDA-Public Use
  Company Number: GB-RANBAXY-2008RR-13248

PATIENT

DRUGS (4)
  1. GABAPENTIN [Suspect]
     Indication: BACK PAIN
     Dosage: 300 MG, BID
     Route: 048
     Dates: start: 20080117, end: 20080211
  2. GABAPENTIN [Suspect]
     Indication: NEURALGIA
  3. MIRTAZAPINE 45MG TABLETS [Concomitant]
     Dosage: 45 MG, QD
     Route: 048
  4. LIDOCAINE [Concomitant]
     Route: 062

REACTIONS (1)
  - VISUAL DISTURBANCE [None]
